FAERS Safety Report 9562586 (Version 1)
Quarter: 2013Q3

REPORT INFORMATION
  Report Type: Spontaneous
  Country: US (occurrence: None)
  Receive Date: 20130926
  Receipt Date: 20130926
  Transmission Date: 20140515
  Serious: Yes (Hospitalization, Disabling)
  Sender: FDA-Public Use
  Company Number: None

PATIENT
  Age: 24 Year
  Sex: Female
  Weight: 57 kg

DRUGS (1)
  1. OPANA [Suspect]
     Indication: DRUG ABUSE

REACTIONS (4)
  - Renal failure [None]
  - Anaemia [None]
  - Staphylococcal bacteraemia [None]
  - Haemodialysis [None]
